FAERS Safety Report 9984037 (Version 1)
Quarter: 2014Q1

REPORT INFORMATION
  Report Type: Spontaneous
  Country: US (occurrence: US)
  Receive Date: 20140307
  Receipt Date: 20140307
  Transmission Date: 20141002
  Serious: No
  Sender: FDA-Public Use
  Company Number: US-ABBVIE-13P-163-1183176-00

PATIENT
  Age: 38 Year
  Sex: Female
  Weight: 56.3 kg

DRUGS (6)
  1. HUMIRA [Suspect]
     Indication: CROHN^S DISEASE
     Dates: start: 2010
  2. SULFA [Suspect]
     Indication: PRODUCT USED FOR UNKNOWN INDICATION
  3. 6MP [Concomitant]
     Indication: CROHN^S DISEASE
  4. ELMIRON [Concomitant]
     Indication: CYSTITIS INTERSTITIAL
  5. UNKNOWN VITAMIN SUPPLEMENTS [Concomitant]
     Indication: VITAMIN SUPPLEMENTATION
  6. HYDROXYZINE HCL [Concomitant]
     Indication: CYSTITIS INTERSTITIAL

REACTIONS (1)
  - Nasopharyngitis [Recovering/Resolving]
